FAERS Safety Report 16304664 (Version 6)
Quarter: 2020Q3

REPORT INFORMATION
  Report Type: Spontaneous
  Country: US (occurrence: US)
  Receive Date: 20190513
  Receipt Date: 20200713
  Transmission Date: 20201102
  Serious: Yes (Other)
  Sender: FDA-Public Use
  Company Number: US-BRISTOL-MYERS SQUIBB COMPANY-BMS-2019-045374

PATIENT
  Age: 80 Year
  Sex: Male
  Weight: 113.4 kg

DRUGS (3)
  1. CADUET [Suspect]
     Active Substance: AMLODIPINE BESYLATE\ATORVASTATIN CALCIUM
     Indication: BLOOD CHOLESTEROL
     Dosage: 1 DOSAGE FORM, QD
     Route: 048
  2. APIXABAN [Suspect]
     Active Substance: APIXABAN
     Indication: PRODUCT USED FOR UNKNOWN INDICATION
     Dosage: UNK
     Route: 065
  3. CADUET [Suspect]
     Active Substance: AMLODIPINE BESYLATE\ATORVASTATIN CALCIUM
     Indication: BLOOD PRESSURE MEASUREMENT

REACTIONS (7)
  - Frustration tolerance decreased [Unknown]
  - Thinking abnormal [Unknown]
  - Dementia [Unknown]
  - Hypoacusis [Unknown]
  - Amnesia [Unknown]
  - Prostate cancer [Unknown]
  - Body height decreased [Unknown]

NARRATIVE: CASE EVENT DATE: 201811
